FAERS Safety Report 5366776-4 (Version None)
Quarter: 2007Q2

REPORT INFORMATION
  Report Type: 
  Country: None (occurrence: None)
  Receive Date: 20070622
  Receipt Date: 20061002
  Transmission Date: 20071010
  Serious: No
  Sender: FDA-Public Use
  Company Number: US-ASTRAZENECA-2006UW19109

PATIENT
  Age: 60 Year
  Sex: Female

DRUGS (3)
  1. RHINOCORT [Suspect]
     Indication: HYPERSENSITIVITY
     Dosage: 1 SPRAY EACH NOSTRIL
     Route: 045
  2. ARIMIDEX [Concomitant]
     Route: 048
  3. AUGMENTIN '125' [Concomitant]

REACTIONS (2)
  - AGEUSIA [None]
  - ANOSMIA [None]
